FAERS Safety Report 4277055-0 (Version None)
Quarter: 2004Q1

REPORT INFORMATION
  Report Type: 
  Country: None (occurrence: None)
  Receive Date: 20040120
  Receipt Date: 20040120
  Transmission Date: 20041129
  Serious: Yes (Hospitalization)
  Sender: FDA-Public Use
  Company Number: None

PATIENT
  Age: 78 Year
  Sex: Male
  Weight: 52.6173 kg

DRUGS (4)
  1. PHENYTOIN [Suspect]
     Indication: CONVULSION
     Dosage: 250 MG PO BID
     Route: 048
  2. DILANTIN [Concomitant]
  3. TYLENOL [Concomitant]
  4. MILK OF MAGNESIA TAB [Concomitant]

REACTIONS (1)
  - COMA [None]
